FAERS Safety Report 8409724-2 (Version None)
Quarter: 2012Q2

REPORT INFORMATION
  Report Type: 
  Country: None (occurrence: None)
  Receive Date: 20120605
  Receipt Date: 20120522
  Transmission Date: 20120825
  Serious: Yes (Hospitalization, Congenital Anomaly)
  Sender: FDA-Public Use
  Company Number: DE-RANBAXY-2012RR-56764

PATIENT
  Sex: Female
  Weight: 2.7 kg

DRUGS (12)
  1. CLOBAZAM [Suspect]
     Dosage: 20 MG/DAY, FROM GW 32 TO 33+1
     Route: 064
     Dates: end: 20110913
  2. LEVOTHYROXINE SODIUM [Concomitant]
     Dosage: 50 UG/DAY, FROM 0-39.2 GESTATIONAL WEEK
     Route: 064
     Dates: start: 20110111, end: 20110913
  3. CLOBAZAM [Suspect]
     Dosage: 15 MG/DAY. FROM 33+2 UNTIL DELIVERY
     Route: 064
     Dates: end: 20110913
  4. LAMOTRIGINE [Concomitant]
     Dosage: 175 MG/DAY
     Route: 064
  5. TOPIRAMATE [Suspect]
     Dosage: 150 MG, BID, FROM 0-39.2 GESTATIONAL WEEK
     Route: 064
     Dates: start: 20110111, end: 20111031
  6. FOLIC ACID [Concomitant]
     Indication: PROPHYLAXIS OF NEURAL TUBE DEFECT
     Dosage: 5 MG/DAY, FROM 11-21 GESTATIONAL WEEK
     Route: 064
     Dates: start: 20110329, end: 20110707
  7. CLOBAZAM [Suspect]
     Dosage: 30 MG/DAY, FROM GW 11
     Route: 064
     Dates: start: 20110329
  8. CLOBAZAM [Suspect]
     Dosage: 25 MG/DAY
     Route: 064
     Dates: start: 20110718
  9. VALPROIC ACID [Suspect]
     Dosage: 1200 MG/DAY, FROM 0-11 GESTATIONAL WEEK
     Route: 064
     Dates: start: 20110111, end: 20110329
  10. CARBAMAZEPINE [Suspect]
     Dosage: 600 MG/DAY, FROM 21.1-39.2 GESTATIONAL WEEK
     Route: 064
     Dates: start: 20110608, end: 20110913
  11. CARBAMAZEPINE [Suspect]
     Dosage: 1000MG/DAY POSTPARTAL DOSE
     Route: 065
  12. LAMOTRIGINE [Concomitant]
     Dosage: 25 MG/DAY/INCREASING DOSE FROM 25 MG/DAY TO 175 MG/DAY, STOPPED BECAUSE OF AGGRESSIVINESS
     Route: 064
     Dates: start: 20110329, end: 20110525

REACTIONS (5)
  - VENTRICULAR SEPTAL DEFECT [None]
  - CONGENITAL CYSTIC KIDNEY DISEASE [None]
  - ATRIAL SEPTAL DEFECT [None]
  - SMALL FOR DATES BABY [None]
  - CONGENITAL ARTERIAL MALFORMATION [None]
